FAERS Safety Report 8954889 (Version 1)
Quarter: 2012Q4

REPORT INFORMATION
  Report Type: 
  Country: FR (occurrence: FR)
  Receive Date: 20121207
  Receipt Date: 20121207
  Transmission Date: 20130627
  Serious: Yes (Other)
  Sender: FDA-Public Use
  Company Number: FR-ABBOTT-12P-056-0980713-00

PATIENT
  Age: 30 Year
  Sex: Male
  Weight: 61 kg

DRUGS (2)
  1. HUMIRA [Suspect]
     Indication: CROHN^S DISEASE
     Dates: start: 201203
  2. XYZALL [Concomitant]
     Indication: SEASONAL ALLERGY

REACTIONS (3)
  - Polycythaemia vera [Not Recovered/Not Resolved]
  - Polycythaemia [Unknown]
  - Haemoglobin increased [Not Recovered/Not Resolved]
